FAERS Safety Report 9312204 (Version 1)
Quarter: 2013Q2

REPORT INFORMATION
  Report Type: Spontaneous
  Country: US (occurrence: US)
  Receive Date: 20130528
  Receipt Date: 20130528
  Transmission Date: 20140414
  Serious: Yes (Hospitalization, Other)
  Sender: FDA-Public Use
  Company Number: US-JNJFOC-20130509249

PATIENT
  Age: 38 Year
  Sex: Male

DRUGS (1)
  1. FENTANYL TRANSDERMAL SYSTEM [Suspect]
     Indication: SUBSTANCE USE
     Route: 055

REACTIONS (2)
  - Intentional drug misuse [Unknown]
  - Pneumonitis [Unknown]
